FAERS Safety Report 15479478 (Version 2)
Quarter: 2018Q4

REPORT INFORMATION
  Report Type: Spontaneous
  Country: US (occurrence: US)
  Receive Date: 20181009
  Receipt Date: 20181012
  Transmission Date: 20190205
  Serious: Yes (Hospitalization, Disabling, Other)
  Sender: FDA-Public Use
  Company Number: US-PFIZER INC-2018401639

PATIENT
  Age: 27 Year
  Sex: Female
  Weight: 68.49 kg

DRUGS (3)
  1. ZOLOFT [Suspect]
     Active Substance: SERTRALINE HYDROCHLORIDE
     Indication: DEPRESSION
  2. ZOLOFT [Suspect]
     Active Substance: SERTRALINE HYDROCHLORIDE
     Indication: ANXIETY
     Dosage: 25 MG, 2X/DAY
     Route: 048
     Dates: start: 20180725, end: 20180803
  3. ATIVAN [Concomitant]
     Active Substance: LORAZEPAM
     Indication: ANXIETY
     Dosage: 1MG UP TO TWICE DAILY AS NEEDED
     Dates: start: 2015

REACTIONS (12)
  - Seizure [Unknown]
  - Soliloquy [Not Recovered/Not Resolved]
  - Syncope [Unknown]
  - Sleep deficit [Unknown]
  - Nausea [Recovered/Resolved]
  - Abdominal discomfort [Not Recovered/Not Resolved]
  - Retching [Unknown]
  - Tremor [Unknown]
  - Mania [Not Recovered/Not Resolved]
  - Hallucination [Not Recovered/Not Resolved]
  - Delusion [Not Recovered/Not Resolved]
  - Headache [Not Recovered/Not Resolved]

NARRATIVE: CASE EVENT DATE: 201808
